FAERS Safety Report 23678453 (Version 1)
Quarter: 2024Q1

REPORT INFORMATION
  Report Type: Spontaneous
  Country: GR (occurrence: GR)
  Receive Date: 20240327
  Receipt Date: 20240327
  Transmission Date: 20240409
  Serious: Yes (Hospitalization, Other)
  Sender: FDA-Public Use
  Company Number: GR-OTSUKA-2024_007794

PATIENT
  Age: 17 Month
  Sex: Female

DRUGS (3)
  1. ARIPIPRAZOLE [Suspect]
     Active Substance: ARIPIPRAZOLE
     Indication: Product used for unknown indication
     Dosage: UNK
     Route: 064
  2. DIAZEPAM [Suspect]
     Active Substance: DIAZEPAM
     Indication: Product used for unknown indication
     Dosage: UNK
     Route: 064
  3. VALPROIC ACID [Suspect]
     Active Substance: VALPROIC ACID
     Indication: Product used for unknown indication
     Dosage: UNK
     Route: 064

REACTIONS (9)
  - Foetal anticonvulsant syndrome [Unknown]
  - Coloboma [Unknown]
  - Nose deformity [Unknown]
  - Syndactyly [Unknown]
  - Foot deformity [Unknown]
  - Neurodevelopmental delay [Unknown]
  - Hypothyroidism [Unknown]
  - Hypotonia [Unknown]
  - Foetal exposure during pregnancy [Unknown]
